FAERS Safety Report 25117780 (Version 1)
Quarter: 2025Q1

REPORT INFORMATION
  Report Type: Spontaneous
  Country: ES (occurrence: ES)
  Receive Date: 20250325
  Receipt Date: 20250325
  Transmission Date: 20250409
  Serious: Yes (Life-Threatening, Hospitalization)
  Sender: MYLAN
  Company Number: ES-MYLANLABS-2025M1025104

PATIENT
  Age: 54 Year
  Sex: Female

DRUGS (52)
  1. NITROGLYCERIN [Suspect]
     Active Substance: NITROGLYCERIN
     Indication: Arteriospasm coronary
  2. NITROGLYCERIN [Suspect]
     Active Substance: NITROGLYCERIN
     Indication: Cardiac arrest
     Route: 065
  3. NITROGLYCERIN [Suspect]
     Active Substance: NITROGLYCERIN
     Route: 065
  4. NITROGLYCERIN [Suspect]
     Active Substance: NITROGLYCERIN
  5. NITROGLYCERIN [Suspect]
     Active Substance: NITROGLYCERIN
     Indication: Arteriospasm coronary
  6. NITROGLYCERIN [Suspect]
     Active Substance: NITROGLYCERIN
     Indication: Cardiac arrest
     Route: 060
  7. NITROGLYCERIN [Suspect]
     Active Substance: NITROGLYCERIN
     Route: 060
  8. NITROGLYCERIN [Suspect]
     Active Substance: NITROGLYCERIN
  9. NITROGLYCERIN [Suspect]
     Active Substance: NITROGLYCERIN
     Indication: Arteriospasm coronary
  10. NITROGLYCERIN [Suspect]
     Active Substance: NITROGLYCERIN
     Indication: Cardiac arrest
     Route: 042
  11. NITROGLYCERIN [Suspect]
     Active Substance: NITROGLYCERIN
     Route: 042
  12. NITROGLYCERIN [Suspect]
     Active Substance: NITROGLYCERIN
  13. VERAPAMIL [Suspect]
     Active Substance: VERAPAMIL HYDROCHLORIDE
     Indication: Arteriospasm coronary
  14. VERAPAMIL [Suspect]
     Active Substance: VERAPAMIL HYDROCHLORIDE
     Indication: Cardiac arrest
     Route: 042
  15. VERAPAMIL [Suspect]
     Active Substance: VERAPAMIL HYDROCHLORIDE
     Route: 042
  16. VERAPAMIL [Suspect]
     Active Substance: VERAPAMIL HYDROCHLORIDE
  17. SODIUM NITROPRUSSIDE [Suspect]
     Active Substance: SODIUM NITROPRUSSIDE
     Indication: Arteriospasm coronary
  18. SODIUM NITROPRUSSIDE [Suspect]
     Active Substance: SODIUM NITROPRUSSIDE
     Indication: Cardiac arrest
     Route: 065
  19. SODIUM NITROPRUSSIDE [Suspect]
     Active Substance: SODIUM NITROPRUSSIDE
     Route: 065
  20. SODIUM NITROPRUSSIDE [Suspect]
     Active Substance: SODIUM NITROPRUSSIDE
  21. FLUVASTATIN [Suspect]
     Active Substance: FLUVASTATIN SODIUM
     Indication: Arteriospasm coronary
  22. FLUVASTATIN [Suspect]
     Active Substance: FLUVASTATIN SODIUM
     Indication: Cardiac arrest
     Route: 065
  23. FLUVASTATIN [Suspect]
     Active Substance: FLUVASTATIN SODIUM
     Route: 065
  24. FLUVASTATIN [Suspect]
     Active Substance: FLUVASTATIN SODIUM
  25. DILTIAZEM [Suspect]
     Active Substance: DILTIAZEM
     Indication: Arteriospasm coronary
  26. DILTIAZEM [Suspect]
     Active Substance: DILTIAZEM
     Indication: Cardiac arrest
     Route: 065
  27. DILTIAZEM [Suspect]
     Active Substance: DILTIAZEM
     Route: 065
  28. DILTIAZEM [Suspect]
     Active Substance: DILTIAZEM
  29. ISOSORBIDE MONONITRATE [Suspect]
     Active Substance: ISOSORBIDE MONONITRATE
     Indication: Arteriospasm coronary
  30. ISOSORBIDE MONONITRATE [Suspect]
     Active Substance: ISOSORBIDE MONONITRATE
     Indication: Cardiac arrest
     Route: 065
  31. ISOSORBIDE MONONITRATE [Suspect]
     Active Substance: ISOSORBIDE MONONITRATE
     Route: 065
  32. ISOSORBIDE MONONITRATE [Suspect]
     Active Substance: ISOSORBIDE MONONITRATE
  33. MOLSIDOMINE [Suspect]
     Active Substance: MOLSIDOMINE
     Indication: Arteriospasm coronary
  34. MOLSIDOMINE [Suspect]
     Active Substance: MOLSIDOMINE
     Indication: Cardiac arrest
     Route: 065
  35. MOLSIDOMINE [Suspect]
     Active Substance: MOLSIDOMINE
     Route: 065
  36. MOLSIDOMINE [Suspect]
     Active Substance: MOLSIDOMINE
  37. RANOLAZINE [Suspect]
     Active Substance: RANOLAZINE
     Indication: Arteriospasm coronary
  38. RANOLAZINE [Suspect]
     Active Substance: RANOLAZINE
     Indication: Cardiac arrest
     Route: 065
  39. RANOLAZINE [Suspect]
     Active Substance: RANOLAZINE
     Route: 065
  40. RANOLAZINE [Suspect]
     Active Substance: RANOLAZINE
  41. DOBUTAMINE [Suspect]
     Active Substance: DOBUTAMINE HYDROCHLORIDE
     Indication: Arteriospasm coronary
  42. DOBUTAMINE [Suspect]
     Active Substance: DOBUTAMINE HYDROCHLORIDE
     Indication: Cardiac arrest
     Route: 065
  43. DOBUTAMINE [Suspect]
     Active Substance: DOBUTAMINE HYDROCHLORIDE
     Route: 065
  44. DOBUTAMINE [Suspect]
     Active Substance: DOBUTAMINE HYDROCHLORIDE
  45. NIMODIPINE [Suspect]
     Active Substance: NIMODIPINE
     Indication: Arteriospasm coronary
  46. NIMODIPINE [Suspect]
     Active Substance: NIMODIPINE
     Indication: Cardiac arrest
     Route: 065
  47. NIMODIPINE [Suspect]
     Active Substance: NIMODIPINE
     Route: 065
  48. NIMODIPINE [Suspect]
     Active Substance: NIMODIPINE
  49. NICORANDIL [Suspect]
     Active Substance: NICORANDIL
     Indication: Arteriospasm coronary
  50. NICORANDIL [Suspect]
     Active Substance: NICORANDIL
     Indication: Cardiac arrest
     Route: 065
  51. NICORANDIL [Suspect]
     Active Substance: NICORANDIL
     Route: 065
  52. NICORANDIL [Suspect]
     Active Substance: NICORANDIL

REACTIONS (1)
  - Drug ineffective [Unknown]
